FAERS Safety Report 12971115 (Version 2)
Quarter: 2016Q4

REPORT INFORMATION
  Report Type: Spontaneous
  Country: US (occurrence: US)
  Receive Date: 20161123
  Receipt Date: 20161128
  Transmission Date: 20170207
  Serious: No
  Sender: FDA-Public Use
  Company Number: US-JAZZ-2016-US-019092

PATIENT
  Sex: Male

DRUGS (13)
  1. XYREM [Suspect]
     Active Substance: SODIUM OXYBATE
     Dosage: 4.5 G, BID
     Route: 048
     Dates: start: 201410
  2. XYREM [Suspect]
     Active Substance: SODIUM OXYBATE
     Indication: NARCOLEPSY
     Dosage: 2.25 G, BID
     Route: 048
     Dates: start: 200305, end: 200405
  3. MORPHINE SULF [Concomitant]
     Active Substance: MORPHINE SULFATE
  4. PROVIGIL [Concomitant]
     Active Substance: MODAFINIL
  5. RIBOFLAVIN [Concomitant]
     Active Substance: RIBOFLAVIN
  6. TRIMETHYLGLYCINE [Concomitant]
  7. VITAMIN B6 [Concomitant]
     Active Substance: PYRIDOXINE HYDROCHLORIDE
  8. VALIUM [Concomitant]
     Active Substance: DIAZEPAM
  9. ZANTAC [Concomitant]
     Active Substance: RANITIDINE HYDROCHLORIDE
  10. ROLAIDS                            /00069401/ [Concomitant]
  11. XYREM [Suspect]
     Active Substance: SODIUM OXYBATE
     Dosage: DOSE ADJUSTMENTS
     Route: 048
     Dates: start: 200405, end: 201410
  12. COENZYME Q10 [Concomitant]
     Active Substance: UBIDECARENONE
  13. FOLIC ACID. [Concomitant]
     Active Substance: FOLIC ACID

REACTIONS (2)
  - Somnolence [Not Recovered/Not Resolved]
  - Fatigue [Unknown]
